FAERS Safety Report 15202197 (Version 1)
Quarter: 2018Q3

REPORT INFORMATION
  Report Type: Spontaneous
  Country: US (occurrence: US)
  Receive Date: 20180726
  Receipt Date: 20180726
  Transmission Date: 20181010
  Serious: Yes (Other)
  Sender: FDA-Public Use
  Company Number: US-PFIZER INC-2018297583

PATIENT
  Age: 81 Year
  Sex: Male

DRUGS (2)
  1. PROPOFOL. [Suspect]
     Active Substance: PROPOFOL
     Indication: GENERAL ANAESTHESIA
     Dosage: UNK
     Route: 042
  2. SUCCINYLCHOLINE CHLORIDE. [Suspect]
     Active Substance: SUCCINYLCHOLINE CHLORIDE
     Indication: GENERAL ANAESTHESIA
     Dosage: UNK
     Route: 042

REACTIONS (2)
  - Aspiration [Recovered/Resolved]
  - Acute respiratory failure [Recovered/Resolved]
